FAERS Safety Report 6434404-2 (Version None)
Quarter: 2009Q4

REPORT INFORMATION
  Report Type: 
  Country: None (occurrence: None)
  Receive Date: 20091110
  Receipt Date: 20090501
  Transmission Date: 20100525
  Serious: No
  Sender: FDA-Public Use
  Company Number: US-ASTRAZENECA-2009SE09000

PATIENT
  Sex: Female

DRUGS (7)
  1. PRILOSEC OTC [Suspect]
     Indication: DYSPEPSIA
     Dosage: 1 TABLET, 1 /DAY
     Route: 048
     Dates: start: 20090301
  2. DIOVAN [Concomitant]
     Dosage: UNKNOWN
  3. HYDROCHLOROTHIAZIDE [Concomitant]
     Dosage: UNKNOWN
  4. MULTI-VITAMINS [Concomitant]
     Dosage: UNKNOWN
  5. LIPITOR [Concomitant]
     Dosage: UNKNOWN
  6. PRAVACHOL [Concomitant]
     Dosage: UNKNOWN
  7. OSTEOPOROSIS PILL [Concomitant]
     Dosage: UNKNOWN

REACTIONS (2)
  - DIARRHOEA [None]
  - GASTROINTESTINAL SOUNDS ABNORMAL [None]
